FAERS Safety Report 16054114 (Version 14)
Quarter: 2023Q2

REPORT INFORMATION
  Report Type: Spontaneous
  Country: None (occurrence: CA)
  Receive Date: 20190308
  Receipt Date: 20230525
  Transmission Date: 20230721
  Serious: Yes (Other)
  Sender: FDA-Public Use
  Company Number: CA-ASCEND THERAPEUTICS-2063780

PATIENT
  Age: 60 Year
  Sex: Female

DRUGS (109)
  1. ESTROGEL [Suspect]
     Active Substance: ESTRADIOL
     Indication: Product used for unknown indication
     Route: 065
  2. ESTROGEL [Suspect]
     Active Substance: ESTRADIOL
  3. PNEUMOCOCCAL VACCINE POLYVALENT [Concomitant]
     Active Substance: PNEUMOCOCCAL VACCINE POLYVALENT
  4. INFLUENZA VIRUS VACCINE [Concomitant]
     Active Substance: INFLUENZA VIRUS VACCINE
  5. PREDNISONE [Suspect]
     Active Substance: PREDNISONE
  6. ACTONEL [Suspect]
     Active Substance: RISEDRONATE SODIUM
  7. ALBUTEROL SULFATE [Suspect]
     Active Substance: ALBUTEROL SULFATE
  8. BREO ELLIPTA [Suspect]
     Active Substance: FLUTICASONE FUROATE\VILANTEROL TRIFENATATE
     Route: 055
  9. COLACE [Suspect]
     Active Substance: DOCUSATE SODIUM
  10. FLUCONAZOLE [Suspect]
     Active Substance: FLUCONAZOLE
     Route: 042
  11. FLUTICASONE PROPIONATE [Suspect]
     Active Substance: FLUTICASONE PROPIONATE
  12. FORADIL [Suspect]
     Active Substance: FORMOTEROL FUMARATE
  13. FORMOTEROL FUMARATE [Suspect]
     Active Substance: FORMOTEROL FUMARATE
     Route: 055
  14. NYSTATIN [Suspect]
     Active Substance: NYSTATIN
     Route: 048
  15. OXYCODONE HYDROCHLORIDE [Suspect]
     Active Substance: OXYCODONE HYDROCHLORIDE
  16. OXYCODONE HYDROCHLORIDE [Suspect]
     Active Substance: OXYCODONE HYDROCHLORIDE
  17. RIVAROXABAN [Suspect]
     Active Substance: RIVAROXABAN
  18. UMECLIDINIUM BROMIDE [Suspect]
     Active Substance: UMECLIDINIUM BROMIDE
     Route: 045
  19. VENTOLIN [Suspect]
     Active Substance: ALBUTEROL SULFATE
  20. HYDROCORTISONE\KETOCONAZOLE [Suspect]
     Active Substance: HYDROCORTISONE\KETOCONAZOLE
     Route: 054
  21. AMOXICILLIN\CLARITHROMYCIN\ESOMEPRAZOLE [Suspect]
     Active Substance: AMOXICILLIN\CLARITHROMYCIN\ESOMEPRAZOLE
  22. METAMUCIL THERAPY FOR REGULARITY [Concomitant]
     Active Substance: PSYLLIUM HUSK
  23. Pulmicort (Budesonide) Unknown [Concomitant]
  24. VITAMINS [Concomitant]
     Active Substance: VITAMINS
  25. CLARITHROMYCIN [Suspect]
     Active Substance: CLARITHROMYCIN
  26. AMOXICILLIN [Suspect]
     Active Substance: AMOXICILLIN
  27. ALBUTEROL\IPRATROPIUM BROMIDE [Suspect]
     Active Substance: ALBUTEROL\IPRATROPIUM BROMIDE
  28. RIVAROXABAN [Suspect]
     Active Substance: RIVAROXABAN
  29. HYDROCORTISONE ACETATE AND PRAMOXINE HYDROCHLORIDE [Suspect]
     Active Substance: HYDROCORTISONE ACETATE\PRAMOXINE HYDROCHLORIDE
  30. ALBUTEROL [Suspect]
     Active Substance: ALBUTEROL
  31. FORMOTEROL FUMARATE [Suspect]
     Active Substance: FORMOTEROL FUMARATE
  32. FLUTICASONE [Suspect]
     Active Substance: FLUTICASONE
  33. XARELTO [Suspect]
     Active Substance: RIVAROXABAN
  34. OXYCODONE [Suspect]
     Active Substance: OXYCODONE
  35. PROCTOCREAM HC [Suspect]
     Active Substance: HYDROCORTISONE
     Route: 054
  36. FORMOTEROL FUMARATE [Suspect]
     Active Substance: FORMOTEROL FUMARATE
  37. POLYMOX [Suspect]
     Active Substance: AMOXICILLIN
  38. PANTOPRAZOLE SODIUM [Suspect]
     Active Substance: PANTOPRAZOLE SODIUM
  39. Calcium  D Pantothenate (Calcium Pantothenate) Unknown [Concomitant]
  40. CHOLINE [Concomitant]
     Active Substance: CHOLINE
  41. NICOTINAMIDE [Concomitant]
     Active Substance: NIACINAMIDE
  42. PYRIDOXINE HYDROCHLORIDE [Concomitant]
     Active Substance: PYRIDOXINE HYDROCHLORIDE
  43. RIBOFLAVIN [Concomitant]
     Active Substance: RIBOFLAVIN
  44. THIAMINE HYDROCHLORIDE [Concomitant]
     Active Substance: THIAMINE HYDROCHLORIDE
  45. VITAMIN B12 [Concomitant]
     Active Substance: CYANOCOBALAMIN
  46. SINGULAIR [Suspect]
     Active Substance: MONTELUKAST SODIUM
  47. SINGULAIR [Suspect]
     Active Substance: MONTELUKAST SODIUM
  48. SINGULAIR [Suspect]
     Active Substance: MONTELUKAST SODIUM
  49. BREO ELLIPTA [Suspect]
     Active Substance: FLUTICASONE FUROATE\VILANTEROL TRIFENATATE
  50. COLACE [Suspect]
     Active Substance: DOCUSATE SODIUM
  51. MONTELUKAST [Suspect]
     Active Substance: MONTELUKAST SODIUM
  52. MONTELUKAST [Suspect]
     Active Substance: MONTELUKAST SODIUM
  53. ESTROGEL [Suspect]
     Active Substance: ESTRADIOL
  54. PREDNISONE [Suspect]
     Active Substance: PREDNISONE
  55. PREDNISONE [Suspect]
     Active Substance: PREDNISONE
  56. BREO ELLIPTA [Suspect]
     Active Substance: FLUTICASONE FUROATE\VILANTEROL TRIFENATATE
     Route: 045
  57. BREO ELLIPTA [Suspect]
     Active Substance: FLUTICASONE FUROATE\VILANTEROL TRIFENATATE
     Route: 045
  58. COLACE [Suspect]
     Active Substance: DOCUSATE SODIUM
  59. FLUCONAZOLE [Suspect]
     Active Substance: FLUCONAZOLE
     Route: 045
  60. FORADIL [Suspect]
     Active Substance: FORMOTEROL FUMARATE
  61. FORMOTEROL FUMARATE [Suspect]
     Active Substance: FORMOTEROL FUMARATE
     Route: 055
  62. NYSTATIN [Suspect]
     Active Substance: NYSTATIN
     Route: 048
  63. NYSTATIN [Suspect]
     Active Substance: NYSTATIN
  64. OXYCODONE HYDROCHLORIDE [Suspect]
     Active Substance: OXYCODONE HYDROCHLORIDE
  65. RIVAROXABAN [Suspect]
     Active Substance: RIVAROXABAN
  66. UMECLIDINIUM BROMIDE [Suspect]
     Active Substance: UMECLIDINIUM BROMIDE
  67. VENTOLIN [Suspect]
     Active Substance: ALBUTEROL SULFATE
  68. CLARITHROMYCIN [Suspect]
     Active Substance: CLARITHROMYCIN
  69. OXYCODONE [Suspect]
     Active Substance: OXYCODONE
  70. HYDROCORTISONE ACETATE\PRAMOXINE HYDROCHLORIDE\ZINC SULFATE [Suspect]
     Active Substance: HYDROCORTISONE ACETATE\PRAMOXINE HYDROCHLORIDE\ZINC SULFATE
  71. FLUCONAZOLE [Suspect]
     Active Substance: FLUCONAZOLE
     Route: 042
  72. FORMOTEROL [Concomitant]
     Active Substance: FORMOTEROL
  73. AMOXICILLIN\CLARITHROMYCIN\PANTOPRAZOLE [Suspect]
     Active Substance: AMOXICILLIN\CLARITHROMYCIN\PANTOPRAZOLE
  74. XARELTO [Suspect]
     Active Substance: RIVAROXABAN
  75. OXYCODONE HYDROCHLORIDE [Suspect]
     Active Substance: OXYCODONE HYDROCHLORIDE
  76. ESOMEPRAZOLE MAGNESIUM [Concomitant]
     Active Substance: ESOMEPRAZOLE MAGNESIUM
     Route: 065
  77. ESOMEPRAZOLE MAGNESIUM [Concomitant]
     Active Substance: ESOMEPRAZOLE MAGNESIUM
     Route: 065
  78. ESOMEPRAZOLE MAGNESIUM [Concomitant]
     Active Substance: ESOMEPRAZOLE MAGNESIUM
     Route: 065
  79. ESOMEPRAZOLE MAGNESIUM [Concomitant]
     Active Substance: ESOMEPRAZOLE MAGNESIUM
     Route: 065
  80. ESOMEPRAZOLE MAGNESIUM [Concomitant]
     Active Substance: ESOMEPRAZOLE MAGNESIUM
     Route: 065
  81. ESOMEPRAZOLE MAGNESIUM [Concomitant]
     Active Substance: ESOMEPRAZOLE MAGNESIUM
     Route: 065
  82. PSYLLIUM HUSK [Concomitant]
     Active Substance: PSYLLIUM HUSK
     Route: 065
  83. AMOXICILLIN TRIHYDRATE [Concomitant]
     Active Substance: AMOXICILLIN
     Route: 065
  84. dexpanthenol (+) ergocalciferol (+) folic acid (+) nicotinamide (+) ri [Concomitant]
     Route: 065
  85. AMOXICILLIN\CLARITHROMYCIN\OMEPRAZOLE [Suspect]
     Active Substance: AMOXICILLIN\CLARITHROMYCIN\OMEPRAZOLE
     Route: 065
  86. ESOMEPRAZOLE MAGNESIUM\NAPROXEN [Suspect]
     Active Substance: ESOMEPRAZOLE MAGNESIUM\NAPROXEN
     Route: 065
  87. NYSTATIN;ZINC OXIDE(ZINC OXIDE, NYSTATIN) [Concomitant]
     Route: 048
  88. ESTROGEL [Suspect]
     Active Substance: ESTRADIOL
     Route: 065
  89. BREO ELLIPTA [Suspect]
     Active Substance: FLUTICASONE FUROATE\VILANTEROL TRIFENATATE
  90. BUDESONIDE [Suspect]
     Active Substance: BUDESONIDE
     Route: 065
  91. FLONASE [Suspect]
     Active Substance: FLUTICASONE PROPIONATE
  92. FORADIL [Suspect]
     Active Substance: FORMOTEROL FUMARATE
     Route: 065
  93. FORADIL [Suspect]
     Active Substance: FORMOTEROL FUMARATE
     Route: 065
  94. UMECLIDINIUM BROMIDE [Suspect]
     Active Substance: UMECLIDINIUM BROMIDE
  95. PROCTOFOAM [Suspect]
     Active Substance: PRAMOXINE HYDROCHLORIDE
     Route: 065
  96. RISEDRONATE SODIUM [Suspect]
     Active Substance: RISEDRONATE SODIUM
     Route: 065
  97. BREO ELLIPTA [Suspect]
     Active Substance: FLUTICASONE FUROATE\VILANTEROL TRIFENATATE
     Route: 065
  98. BUDESONIDE [Suspect]
     Active Substance: BUDESONIDE
     Route: 065
  99. FLONASE [Suspect]
     Active Substance: FLUTICASONE PROPIONATE
     Route: 065
  100. FORMOTEROL FUMARATE [Suspect]
     Active Substance: FORMOTEROL FUMARATE
     Route: 065
  101. NYSTATIN [Suspect]
     Active Substance: NYSTATIN
     Route: 048
  102. ALBUTEROL [Suspect]
     Active Substance: ALBUTEROL
     Route: 065
  103. UMECLIDINIUM BROMIDE [Suspect]
     Active Substance: UMECLIDINIUM BROMIDE
     Route: 065
  104. HYDROCORTISONE [Suspect]
     Active Substance: HYDROCORTISONE
     Route: 065
  105. ZINC [Suspect]
     Active Substance: ZINC
     Route: 065
  106. CLARITHROMYCIN [Suspect]
     Active Substance: CLARITHROMYCIN
     Route: 065
  107. POLYMOX [Suspect]
     Active Substance: AMOXICILLIN
     Route: 065
  108. RISEDRONATE SODIUM [Suspect]
     Active Substance: RISEDRONATE SODIUM
     Route: 065
  109. UMECLIDINIUM BROMIDE [Suspect]
     Active Substance: UMECLIDINIUM BROMIDE
     Route: 065

REACTIONS (41)
  - Asthma [Unknown]
  - Candida infection [Unknown]
  - Chest discomfort [Unknown]
  - Chronic sinusitis [Unknown]
  - Cough [Unknown]
  - Diastolic dysfunction [Unknown]
  - Disease recurrence [Unknown]
  - Diverticulum [Unknown]
  - Dyspnoea [Unknown]
  - Dyspnoea exertional [Unknown]
  - Eczema [Unknown]
  - Emphysema [Unknown]
  - Female genital tract fistula [Unknown]
  - Fungal infection [Unknown]
  - Gastrooesophageal reflux disease [Unknown]
  - Gastrooesophageal reflux disease [Unknown]
  - Hiatus hernia [Unknown]
  - Hysterectomy [Unknown]
  - Iron deficiency anaemia [Unknown]
  - Iron deficiency anaemia [Unknown]
  - Lower respiratory tract infection [Unknown]
  - Nasal polyps [Unknown]
  - Obstructive airways disorder [Unknown]
  - Osteoarthritis [Unknown]
  - Osteoporosis [Unknown]
  - Respiratory symptom [Unknown]
  - Salpingo-oophorectomy unilateral [Unknown]
  - Sinusitis [Unknown]
  - Sleep apnoea syndrome [Unknown]
  - Sputum increased [Unknown]
  - Tricuspid valve incompetence [Unknown]
  - Wheezing [Unknown]
  - Deep vein thrombosis [Unknown]
  - Embolism venous [Unknown]
  - Pulmonary embolism [Unknown]
  - Oedema peripheral [Unknown]
  - Weight increased [Unknown]
  - Abdominal discomfort [Unknown]
  - Sinusitis fungal [Unknown]
  - Sinusitis [Unknown]
  - Obstructive sleep apnoea syndrome [Unknown]
